FAERS Safety Report 16961254 (Version 1)
Quarter: 2019Q4

REPORT INFORMATION
  Report Type: Report from Study
  Country: EC (occurrence: EC)
  Receive Date: 20191025
  Receipt Date: 20191025
  Transmission Date: 20200122
  Serious: Yes (Hospitalization, Other)
  Sender: FDA-Public Use
  Company Number: EC-IPSEN BIOPHARMACEUTICALS, INC.-2019-18089

PATIENT
  Age: 56 Year
  Sex: Female
  Weight: 73.5 kg

DRUGS (2)
  1. DYSPORT [Suspect]
     Active Substance: ABOBOTULINUMTOXINA
     Indication: AMYOTROPHIC LATERAL SCLEROSIS
     Dosage: 2500 IU
     Route: 030
     Dates: start: 20190913
  2. DYSPORT [Suspect]
     Active Substance: ABOBOTULINUMTOXINA
     Indication: OFF LABEL USE

REACTIONS (8)
  - Dizziness [Recovering/Resolving]
  - Asthenia [Recovering/Resolving]
  - Blindness transient [Recovering/Resolving]
  - Anxiety [Recovering/Resolving]
  - Speech disorder [Recovering/Resolving]
  - Off label use [Unknown]
  - Malaise [Not Recovered/Not Resolved]
  - Vision blurred [Not Recovered/Not Resolved]

NARRATIVE: CASE EVENT DATE: 20190913
